FAERS Safety Report 8827766 (Version 1)
Quarter: 2012Q4

REPORT INFORMATION
  Report Type: 
  Country: US (occurrence: US)
  Receive Date: 20121008
  Receipt Date: 20121008
  Transmission Date: 20130627
  Serious: No
  Sender: FDA-Public Use
  Company Number: US-PFIZER INC-2012245228

PATIENT
  Age: 83 Year
  Sex: Female
  Weight: 79.82 kg

DRUGS (10)
  1. REVATIO [Suspect]
     Indication: PULMONARY HYPERTENSION
     Dosage: 20 mg, 3x/day
     Dates: start: 20120329
  2. REVATIO [Suspect]
     Indication: CARDIAC DISORDER
  3. METOPROLOL [Concomitant]
     Indication: CARDIAC DISORDER
     Dosage: 50 mg, 3x/day
  4. METOPROLOL [Concomitant]
     Indication: HYPERTENSION
  5. ASPIRIN [Concomitant]
     Indication: CARDIAC DISORDER
     Dosage: 325 mg, daily
  6. GABAPENTIN [Concomitant]
     Indication: MUSCLE SPASMS
     Dosage: 200 mg, daily at bedtime
  7. FUROSEMIDE [Concomitant]
     Indication: FLUID RETENTION
     Dosage: 40 mg, daily
  8. POTASSIUM CHLORIDE [Concomitant]
     Indication: HYPOKALAEMIA
     Dosage: 10 mEq, UNK
  9. VITAMIN B12 [Concomitant]
     Dosage: 1000 ug, UNK
  10. VITAMIN B6 [Concomitant]
     Dosage: 100 mg, UNK

REACTIONS (1)
  - Upper respiratory tract infection [Recovered/Resolved]
